FAERS Safety Report 6446459-X (Version None)
Quarter: 2009Q4

REPORT INFORMATION
  Report Type: 
  Country: None (occurrence: None)
  Receive Date: 20091119
  Receipt Date: 20091112
  Transmission Date: 20100525
  Serious: Yes (Other)
  Sender: FDA-Public Use
  Company Number: PHHY2009JP50243

PATIENT
  Age: 12 Year
  Sex: Male

DRUGS (1)
  1. ZADITEN [Suspect]
     Dosage: UNK
     Route: 048

REACTIONS (1)
  - ASTHMA [None]
